FAERS Safety Report 9663064 (Version 2)
Quarter: 2013Q4

REPORT INFORMATION
  Report Type: Spontaneous
  Country: FR (occurrence: FR)
  Receive Date: 20131031
  Receipt Date: 20131031
  Transmission Date: 20140711
  Serious: Yes (Life-Threatening, Hospitalization, Other)
  Sender: FDA-Public Use
  Company Number: FR-009507513-1208FRA009347

PATIENT
  Age: 65 Year
  Sex: Male

DRUGS (2)
  1. ORGARAN [Suspect]
     Indication: THROMBOSIS PROPHYLAXIS
     Dosage: UNK
     Route: 058
     Dates: end: 20120705
  2. PREVISCAN [Suspect]
     Indication: THROMBOSIS PROPHYLAXIS
     Dosage: 20 MG, QD
     Route: 048
     Dates: start: 20120703, end: 20120705

REACTIONS (2)
  - Haemorrhagic stroke [Unknown]
  - Convulsion [Unknown]
